FAERS Safety Report 4456774-7 (Version None)
Quarter: 2004Q3

REPORT INFORMATION
  Report Type: 
  Country: None (occurrence: None)
  Receive Date: 20040921
  Receipt Date: 20040907
  Transmission Date: 20050211
  Serious: Yes (Hospitalization)
  Sender: FDA-Public Use
  Company Number: F01200401862

PATIENT
  Age: 70 Year
  Sex: Female

DRUGS (13)
  1. OXALIPLATIN SOLUTION 85MG/M2 [Suspect]
     Indication: COLORECTAL CANCER
     Dosage: 85 MG/M2 QW2
     Route: 042
     Dates: start: 20040330, end: 20040330
  2. FLUOROURACIL [Suspect]
     Dosage: 400 MG/M2 THEN 2400 MG/M2 AS 46 HOURS INFUSION Q2W
     Route: 042
     Dates: start: 20040330, end: 20040401
  3. LEUCOVORIN SOLUTION 350MG [Suspect]
     Dosage: 350 MG Q2W
     Dates: start: 20040330, end: 20040330
  4. AVASTIN [Suspect]
     Dosage: 5 MG/KG OVER 30-90 MINUTES IV INFUSION ON DAY 1, Q2W
     Route: 042
     Dates: start: 20040330, end: 20040330
  5. CALTRATE (CALCIUM CARBONATE) [Concomitant]
  6. BETAPACE [Concomitant]
  7. PERCOCET (OXYCODONE HCL+PARACETAMOL) [Concomitant]
  8. OLMESARTAN [Concomitant]
  9. COMPAZINE [Concomitant]
  10. OXYCODONE HCL [Concomitant]
  11. METAMUCIL-2 [Concomitant]
  12. ONE A DAY VITAMINS [Concomitant]
  13. LOMOTIL [Concomitant]

REACTIONS (9)
  - ATRIAL FIBRILLATION [None]
  - BLOOD SODIUM DECREASED [None]
  - BLOOD UREA INCREASED [None]
  - CLOSTRIDIUM COLITIS [None]
  - CONDITION AGGRAVATED [None]
  - ELECTROCARDIOGRAM QRS COMPLEX ABNORMAL [None]
  - ELECTROCARDIOGRAM QT PROLONGED [None]
  - ELECTROCARDIOGRAM ST-T CHANGE [None]
  - VENTRICULAR EXTRASYSTOLES [None]
